FAERS Safety Report 10173695 (Version 1)
Quarter: 2014Q2

REPORT INFORMATION
  Report Type: Spontaneous
  Country: US (occurrence: None)
  Receive Date: 20140514
  Receipt Date: 20140514
  Transmission Date: 20141212
  Serious: No
  Sender: FDA-Public Use
  Company Number: None

PATIENT
  Age: 62 Year
  Sex: Male

DRUGS (2)
  1. OLYSIO [Suspect]
     Indication: CHRONIC HEPATITIS C
     Route: 048
     Dates: start: 20140411
  2. SOVALDI [Suspect]
     Indication: CHRONIC HEPATITIS C
     Route: 048
     Dates: start: 20140411

REACTIONS (4)
  - Sunburn [None]
  - Chest discomfort [None]
  - Testis discomfort [None]
  - Semen discolouration [None]
